FAERS Safety Report 11320259 (Version 1)
Quarter: 2015Q3

REPORT INFORMATION
  Report Type: Spontaneous
  Country: HR (occurrence: HR)
  Receive Date: 20150729
  Receipt Date: 20150729
  Transmission Date: 20151125
  Serious: Yes (Other)
  Sender: FDA-Public Use
  Company Number: PHHY2015HR088672

PATIENT
  Age: 53 Year
  Sex: Female

DRUGS (3)
  1. ISONIAZID, PYRIDOXINE [Suspect]
     Active Substance: ISONIAZID\PYRIDOXINE
     Route: 065
  2. ISONIAZID, PYRIDOXINE [Suspect]
     Active Substance: ISONIAZID\PYRIDOXINE
     Indication: PULMONARY TUBERCULOSIS
     Route: 065
  3. RIFAMPICIN [Concomitant]
     Active Substance: RIFAMPIN
     Indication: PULMONARY TUBERCULOSIS
     Route: 065

REACTIONS (6)
  - Pruritus [Recovered/Resolved]
  - Pyrexia [Recovered/Resolved]
  - Chest pain [Recovered/Resolved]
  - Rosacea [Recovered/Resolved]
  - Papule [Recovered/Resolved]
  - Erythema [Recovered/Resolved]
